FAERS Safety Report 7603507-9 (Version None)
Quarter: 2011Q3

REPORT INFORMATION
  Report Type: 
  Country: None (occurrence: None)
  Receive Date: 20110629
  Receipt Date: 20110619
  Transmission Date: 20111222
  Serious: Yes (Other)
  Sender: FDA-Public Use
  Company Number: 2011SP028709

PATIENT
  Age: 65 Year
  Sex: Female

DRUGS (11)
  1. REMERON [Suspect]
     Indication: ANXIETY
     Dosage: 15; 30 MG, QD, PO
     Route: 048
     Dates: start: 20110601, end: 20110601
  2. REMERON [Suspect]
     Indication: ANXIETY
     Dosage: 15; 30 MG, QD, PO
     Route: 048
     Dates: start: 20110601
  3. NEUPRO [Suspect]
     Indication: RESTLESS LEGS SYNDROME
     Dosage: 2 MG, TDER
     Route: 062
     Dates: start: 20110101, end: 20110101
  4. KATADOLON S LONG [Concomitant]
  5. ATACAND [Concomitant]
  6. DOLOMIT [Concomitant]
  7. LORAZEPAM [Concomitant]
  8. LEVOTHYROXINE SODIUM [Concomitant]
  9. TILIDIN AL COMP (TILIDINE/NAXOLONE) [Suspect]
     Indication: PAIN
     Dosage: BID, PO
     Route: 048
  10. OXYCODONE HCL [Suspect]
     Indication: PAIN
     Dosage: PO
     Route: 048
     Dates: start: 20110101, end: 20110101
  11. NOVAMINSULFON [Concomitant]

REACTIONS (6)
  - DRUG INTOLERANCE [None]
  - DRUG INTERACTION [None]
  - NAUSEA [None]
  - BLOOD PRESSURE INCREASED [None]
  - NIGHTMARE [None]
  - SEROTONIN SYNDROME [None]
